FAERS Safety Report 6282320-1 (Version None)
Quarter: 2009Q3

REPORT INFORMATION
  Report Type: 
  Country: None (occurrence: None)
  Receive Date: 20090724
  Receipt Date: 20090716
  Transmission Date: 20100115
  Serious: No
  Sender: FDA-Public Use
  Company Number: FR-EISAI INC.-E3810-03007-SPO-FR

PATIENT
  Age: 67 Year
  Sex: Male

DRUGS (2)
  1. PARIET (RABEPRAZOLE) [Suspect]
     Indication: OESOPHAGITIS
     Route: 048
     Dates: start: 20090701
  2. SUCRALFATE [Concomitant]

REACTIONS (4)
  - CONDITION AGGRAVATED [None]
  - DYSPHAGIA [None]
  - OESOPHAGITIS [None]
  - WRONG TECHNIQUE IN DRUG USAGE PROCESS [None]
